FAERS Safety Report 7815539-6 (Version None)
Quarter: 2011Q4

REPORT INFORMATION
  Report Type: 
  Country: None (occurrence: None)
  Receive Date: 20111014
  Receipt Date: 20111004
  Transmission Date: 20120403
  Serious: Yes (Other)
  Sender: FDA-Public Use
  Company Number: US-JNJFOC-20111002132

PATIENT
  Sex: Female
  Weight: 61.24 kg

DRUGS (3)
  1. REMICADE [Suspect]
     Indication: COLITIS ULCERATIVE
     Route: 042
     Dates: end: 20110101
  2. PREDNISONE [Concomitant]
  3. MESALAMINE [Concomitant]
     Route: 048

REACTIONS (2)
  - RESECTION OF RECTUM [None]
  - COLECTOMY [None]
